FAERS Safety Report 7474021-9 (Version None)
Quarter: 2011Q2

REPORT INFORMATION
  Report Type: 
  Country: None (occurrence: None)
  Receive Date: 20110511
  Receipt Date: 20110407
  Transmission Date: 20111010
  Serious: Yes (Hospitalization, Other)
  Sender: FDA-Public Use
  Company Number: US-BAYER-201028623NA

PATIENT
  Age: 23 Year
  Sex: Female
  Weight: 79.365 kg

DRUGS (7)
  1. YASMIN [Suspect]
     Indication: ENDOMETRIOSIS
  2. ZOFRAN [Concomitant]
     Indication: BILIARY COLIC
  3. LEXAPRO [Concomitant]
     Indication: DEPRESSION
  4. MORPHINE [Concomitant]
     Indication: BILIARY COLIC
  5. YASMIN [Suspect]
     Indication: CONTRACEPTION
     Route: 048
     Dates: start: 20040101
  6. NSAID'S [Concomitant]
  7. PROTONIX [Concomitant]
     Indication: BILIARY COLIC

REACTIONS (6)
  - NAUSEA [None]
  - CHOLELITHIASIS [None]
  - HEPATIC ENZYME INCREASED [None]
  - ABDOMINAL PAIN UPPER [None]
  - CHOLECYSTITIS CHRONIC [None]
  - VOMITING [None]
